FAERS Safety Report 18384727 (Version 3)
Quarter: 2020Q4

REPORT INFORMATION
  Report Type: Report from Study
  Country: BR (occurrence: BR)
  Receive Date: 20201015
  Receipt Date: 20201224
  Transmission Date: 20210114
  Serious: Yes (Other)
  Sender: FDA-Public Use
  Company Number: NVSC2020BR274684

PATIENT
  Age: 47 Year
  Sex: Female

DRUGS (1)
  1. COSENTYX [Suspect]
     Active Substance: SECUKINUMAB
     Indication: PSORIATIC ARTHROPATHY
     Dosage: 150 MG, UNKNOWN
     Route: 065
     Dates: start: 20200923, end: 20201002

REACTIONS (10)
  - Immunodeficiency [Unknown]
  - Procedural vomiting [Not Recovered/Not Resolved]
  - Haemorrhage [Recovered/Resolved]
  - Intestinal fistula [Unknown]
  - Haemorrhage [Not Recovered/Not Resolved]
  - Pyrexia [Not Recovered/Not Resolved]
  - Urinary tract infection [Not Recovered/Not Resolved]
  - Nausea [Recovered/Resolved]
  - Blood test abnormal [Unknown]
  - Nausea [Not Recovered/Not Resolved]

NARRATIVE: CASE EVENT DATE: 202009
